FAERS Safety Report 9724559 (Version 3)
Quarter: 2014Q2

REPORT INFORMATION
  Report Type: Spontaneous
  Country: US (occurrence: US)
  Receive Date: 20131202
  Receipt Date: 20140509
  Transmission Date: 20141212
  Serious: Yes (Other)
  Sender: FDA-Public Use
  Company Number: US-AMGEN-USASP2013081542

PATIENT
  Age: 66 Year
  Sex: Female
  Weight: 76.19 kg

DRUGS (2)
  1. ENBREL [Suspect]
     Indication: RHEUMATOID ARTHRITIS
     Dosage: 50 MG, QWK
     Route: 058
     Dates: start: 20131106, end: 20131120
  2. PREDNISONE [Suspect]
     Indication: PRODUCT USED FOR UNKNOWN INDICATION
     Dosage: UNK
     Route: 065

REACTIONS (12)
  - Pharyngeal oedema [Recovered/Resolved]
  - Rheumatoid arthritis [Recovered/Resolved]
  - Drug hypersensitivity [Unknown]
  - Insomnia [Recovered/Resolved]
  - Overdose [Recovered/Resolved]
  - Dysphagia [Recovered/Resolved]
  - Blood glucose abnormal [Recovered/Resolved]
  - Muscular weakness [Recovered/Resolved]
  - Rash pruritic [Recovered/Resolved]
  - Injection site erythema [Not Recovered/Not Resolved]
  - Injection site pruritus [Not Recovered/Not Resolved]
  - Injection site warmth [Not Recovered/Not Resolved]
